FAERS Safety Report 18409038 (Version 1)
Quarter: 2020Q4

REPORT INFORMATION
  Report Type: Spontaneous
  Country: CA (occurrence: CA)
  Receive Date: 20201021
  Receipt Date: 20201021
  Transmission Date: 20210114
  Serious: Yes (Other)
  Sender: FDA-Public Use
  Company Number: CA-ORION CORPORATION ORION PHARMA-20_00011327

PATIENT
  Age: 61 Year
  Sex: Male

DRUGS (3)
  1. METHOTREXATE (TRADE NAME UNKNOWN) [Suspect]
     Active Substance: METHOTREXATE
     Indication: RHEUMATOID ARTHRITIS
     Route: 065
     Dates: start: 202001
  2. PREDNISONE. [Concomitant]
     Active Substance: PREDNISONE
     Route: 065
  3. KEVZARA [Concomitant]
     Active Substance: SARILUMAB
     Route: 065
     Dates: start: 202007

REACTIONS (2)
  - Contraindicated product administered [Unknown]
  - Age-related macular degeneration [Unknown]
